FAERS Safety Report 18543057 (Version 2)
Quarter: 2020Q4

REPORT INFORMATION
  Report Type: Spontaneous
  Country: US (occurrence: US)
  Receive Date: 20201124
  Receipt Date: 20201211
  Transmission Date: 20210114
  Serious: No
  Sender: FDA-Public Use
  Company Number: US-009507513-2011USA013443

PATIENT
  Age: 34 Year
  Sex: Female

DRUGS (1)
  1. KEYTRUDA [Suspect]
     Active Substance: PEMBROLIZUMAB
     Indication: TUBULAR BREAST CARCINOMA

REACTIONS (3)
  - Extraocular muscle disorder [Unknown]
  - Diplopia [Recovering/Resolving]
  - Product use in unapproved indication [Unknown]
